FAERS Safety Report 8834456 (Version 1)
Quarter: 2012Q4

REPORT INFORMATION
  Report Type: Spontaneous
  Country: US (occurrence: None)
  Receive Date: 20121010
  Receipt Date: 20121010
  Transmission Date: 20130627
  Serious: Yes (Other)
  Sender: FDA-Public Use
  Company Number: None

PATIENT
  Age: 61 Year
  Sex: Male
  Weight: 105.24 kg

DRUGS (2)
  1. HYDROCODONE BITARTRATE [Suspect]
     Indication: GOUT
     Dosage: 1 tab every 6 hrs. prn po
     Route: 048
     Dates: start: 20121004, end: 20121008
  2. HYDROCODONE BITARTRATE [Suspect]
     Indication: PAIN MANAGEMENT
     Dosage: 1 tab every 6 hrs. prn po
     Route: 048
     Dates: start: 20121004, end: 20121008

REACTIONS (3)
  - Nausea [None]
  - Dizziness [None]
  - Product quality issue [None]
